FAERS Safety Report 16762883 (Version 2)
Quarter: 2019Q3

REPORT INFORMATION
  Report Type: Report from Study
  Country: US (occurrence: US)
  Receive Date: 20190901
  Receipt Date: 20190902
  Transmission Date: 20191005
  Serious: Yes (Death)
  Sender: FDA-Public Use
  Company Number: US-BIOGEN-2019BI00778728

PATIENT
  Sex: Male

DRUGS (2)
  1. AVONEX [Suspect]
     Active Substance: INTERFERON BETA-1A
     Indication: MULTIPLE SCLEROSIS
     Route: 065
     Dates: start: 19960701, end: 20190716
  2. AVONEX [Suspect]
     Active Substance: INTERFERON BETA-1A
     Route: 065

REACTIONS (1)
  - Pancreatic carcinoma [Fatal]
